FAERS Safety Report 7118444-6 (Version None)
Quarter: 2010Q4

REPORT INFORMATION
  Report Type: 
  Country: None (occurrence: None)
  Receive Date: 20101123
  Receipt Date: 20101117
  Transmission Date: 20110411
  Serious: Yes (Other)
  Sender: FDA-Public Use
  Company Number: FR-JNJFOC-20101002402

PATIENT
  Age: 54 Year
  Sex: Female

DRUGS (4)
  1. CAELYX [Suspect]
     Indication: METASTASIS
     Dosage: CYCLE 3
     Route: 042
  2. CAELYX [Suspect]
     Dosage: CYCLE 2
     Route: 042
  3. CAELYX [Suspect]
     Dosage: CYCLE 1
     Route: 042
  4. AROMASIN [Concomitant]
     Indication: BREAST CANCER
     Route: 065

REACTIONS (4)
  - DERMATITIS CONTACT [None]
  - DERMATITIS EXFOLIATIVE [None]
  - EPIDERMOLYSIS [None]
  - PIGMENTATION DISORDER [None]
